FAERS Safety Report 6751165-8 (Version None)
Quarter: 2010Q2

REPORT INFORMATION
  Report Type: 
  Country: None (occurrence: None)
  Receive Date: 20100602
  Receipt Date: 20100527
  Transmission Date: 20101027
  Serious: Yes (Other)
  Sender: FDA-Public Use
  Company Number: FR-BRISTOL-MYERS SQUIBB COMPANY-15124894

PATIENT
  Age: 69 Year
  Sex: Male

DRUGS (2)
  1. HYDREA [Suspect]
     Indication: THROMBOCYTOSIS
     Dosage: STARTED IN SEPT/OCT2008;1DF:2 CAPS/DAY AND 3 CAPS/DAY ON ALTERNATE DAYS
     Route: 048
     Dates: start: 20080101
  2. KARDEGIC [Concomitant]
     Dates: start: 20080101

REACTIONS (3)
  - BLOOD GLUCOSE INCREASED [None]
  - GLYCOSYLATED HAEMOGLOBIN INCREASED [None]
  - SKIN DISCOLOURATION [None]
